FAERS Safety Report 6227388-3 (Version None)
Quarter: 2009Q2

REPORT INFORMATION
  Report Type: 
  Country: None (occurrence: None)
  Receive Date: 20090610
  Receipt Date: 20090527
  Transmission Date: 20091009
  Serious: Yes (Disabling, Other)
  Sender: FDA-Public Use
  Company Number: VI-1169740

PATIENT
  Sex: Male

DRUGS (4)
  1. TRIFLURIDINE [Suspect]
     Indication: CONJUNCTIVITIS
     Dosage: (OPHTHALMIC)
     Route: 047
     Dates: start: 20070205
  2. GARAMYCIN [Concomitant]
  3. XALATAN [Concomitant]
  4. COSOPT [Concomitant]

REACTIONS (7)
  - ANXIETY [None]
  - BLINDNESS [None]
  - BURNING SENSATION [None]
  - EMOTIONAL DISTRESS [None]
  - INJURY [None]
  - PAIN [None]
  - PRODUCT SUBSTITUTION ISSUE [None]
